FAERS Safety Report 6678760-9 (Version None)
Quarter: 2010Q2

REPORT INFORMATION
  Report Type: 
  Country: None (occurrence: None)
  Receive Date: 20100413
  Receipt Date: 20100330
  Transmission Date: 20101027
  Serious: Yes (Other)
  Sender: FDA-Public Use
  Company Number: JP-RANBAXY-2010RR-32580

PATIENT
  Age: 57 Year
  Sex: Male

DRUGS (3)
  1. FENOFIBRATE [Suspect]
     Indication: HYPERLIPIDAEMIA
     Dosage: 200 MG, UNK
     Route: 048
     Dates: start: 20100110, end: 20100215
  2. ALLOPURINOL [Suspect]
     Dosage: UNK
     Route: 048
     Dates: start: 20100110, end: 20100215
  3. ETHYL ISOSAPENTATE [Concomitant]
     Dosage: UNK
     Route: 065
     Dates: end: 20100215

REACTIONS (1)
  - HEPATIC FUNCTION ABNORMAL [None]
